FAERS Safety Report 16587846 (Version 2)
Quarter: 2019Q4

REPORT INFORMATION
  Report Type: Report from Study
  Country: US (occurrence: US)
  Receive Date: 20190717
  Receipt Date: 20191125
  Transmission Date: 20200122
  Serious: Yes (Hospitalization)
  Sender: FDA-Public Use
  Company Number: US-EISAI MEDICAL RESEARCH-EC-2018-045450

PATIENT
  Sex: Male
  Weight: 58 kg

DRUGS (11)
  1. LOSARTAN POTASSIUM. [Concomitant]
     Active Substance: LOSARTAN POTASSIUM
  2. LENVIMA [Suspect]
     Active Substance: LENVATINIB
     Dosage: DOSE DECREASED (DOSE UNKNOWN)
     Route: 048
     Dates: start: 20190910, end: 201909
  3. VITAMIN B12 [Concomitant]
     Active Substance: CYANOCOBALAMIN
  4. LEVOTHYROXINE SODIUM. [Concomitant]
     Active Substance: LEVOTHYROXINE SODIUM
  5. AMLODIPINE BESYLATE. [Concomitant]
     Active Substance: AMLODIPINE BESYLATE
  6. OXYBUTYNIN CHLORIDE. [Concomitant]
     Active Substance: OXYBUTYNIN CHLORIDE
  7. TAMSULOSIN HCL [Concomitant]
     Active Substance: TAMSULOSIN HYDROCHLORIDE
  8. LENVIMA [Suspect]
     Active Substance: LENVATINIB
     Indication: THYROID CANCER
     Route: 048
     Dates: start: 201611
  9. LENVIMA [Suspect]
     Active Substance: LENVATINIB
     Route: 048
     Dates: start: 201807, end: 201907
  10. LENVIMA [Suspect]
     Active Substance: LENVATINIB
     Route: 048
     Dates: start: 201910
  11. CALCIUM 500 [Concomitant]

REACTIONS (21)
  - Anaemia [Not Recovered/Not Resolved]
  - Skin haemorrhage [Unknown]
  - Dizziness [Unknown]
  - Confusional state [Unknown]
  - Hypocalcaemia [Not Recovered/Not Resolved]
  - Hypotension [Unknown]
  - Diarrhoea [Not Recovered/Not Resolved]
  - Panic attack [Not Recovered/Not Resolved]
  - Blood pressure increased [Unknown]
  - Abdominal discomfort [Not Recovered/Not Resolved]
  - Nausea [Unknown]
  - Anxiety [Not Recovered/Not Resolved]
  - Amnesia [Not Recovered/Not Resolved]
  - Skin exfoliation [Unknown]
  - Gingivitis [Unknown]
  - Sensitive skin [Unknown]
  - Dry skin [Unknown]
  - Decreased appetite [Unknown]
  - Vomiting [Unknown]
  - Gingival bleeding [Unknown]
  - Fall [Unknown]

NARRATIVE: CASE EVENT DATE: 2016
